FAERS Safety Report 5636738-8 (Version None)
Quarter: 2008Q1

REPORT INFORMATION
  Report Type: 
  Country: None (occurrence: None)
  Receive Date: 20080219
  Receipt Date: 20080212
  Transmission Date: 20080703
  Serious: Yes (Life-Threatening, Hospitalization, Other)
  Sender: FDA-Public Use
  Company Number: 08022416

PATIENT
  Age: 65 Year
  Sex: Female

DRUGS (4)
  1. AMIODARONE HCL [Suspect]
     Indication: ATRIAL FIBRILLATION
     Dosage: 200MG, QD, ORAL
     Route: 048
  2. LOSARTAN POTASSIUM [Concomitant]
  3. HYDROCHLOROTHIAZIDE (HYDORCHLOROTHIAZIDE) [Concomitant]
  4. ASPIRIN [Concomitant]

REACTIONS (1)
  - BRUGADA SYNDROME [None]
